FAERS Safety Report 23560930 (Version 4)
Quarter: 2024Q4

REPORT INFORMATION
  Report Type: Spontaneous
  Country: US (occurrence: US)
  Receive Date: 20240223
  Receipt Date: 20241125
  Transmission Date: 20250115
  Serious: Yes (Other)
  Sender: DAIICHI
  Company Number: US-DSJP-DSU-2024-108227

PATIENT
  Age: 9 Decade
  Sex: Female

DRUGS (2)
  1. ENHERTU [Suspect]
     Active Substance: FAM-TRASTUZUMAB DERUXTECAN-NXKI
     Indication: HER2 mutant non-small cell lung cancer
     Dosage: 5.4 MG/KG, ONCE EVERY 6 WEEKS
     Route: 042
     Dates: start: 202401
  2. ENHERTU [Suspect]
     Active Substance: FAM-TRASTUZUMAB DERUXTECAN-NXKI
     Dosage: 3.2 MG/KG
     Route: 042
     Dates: start: 2024

REACTIONS (4)
  - Pneumonitis [Not Recovered/Not Resolved]
  - COVID-19 [Unknown]
  - Disease progression [Unknown]
  - Off label use [Not Recovered/Not Resolved]

NARRATIVE: CASE EVENT DATE: 20240101
